FAERS Safety Report 4460072-5 (Version None)
Quarter: 2004Q3

REPORT INFORMATION
  Report Type: 
  Country: None (occurrence: None)
  Receive Date: 20040923
  Receipt Date: 20040913
  Transmission Date: 20050211
  Serious: Yes (Death, Hospitalization, Other)
  Sender: FDA-Public Use
  Company Number: US-JNJFOC-20040903509

PATIENT
  Age: 63 Year
  Sex: Female

DRUGS (3)
  1. ACETAMINOPHEN [Suspect]
     Indication: SUICIDE ATTEMPT
  2. ASPIRIN [Suspect]
     Indication: SUICIDE ATTEMPT
  3. AMPHETAMINE (AMFETAMINE) [Suspect]
     Indication: SUICIDE ATTEMPT

REACTIONS (12)
  - BLOOD GLUCOSE INCREASED [None]
  - CONFUSIONAL STATE [None]
  - DEPRESSED LEVEL OF CONSCIOUSNESS [None]
  - DRUG SCREEN POSITIVE [None]
  - DYSPNOEA [None]
  - HYPOAESTHESIA [None]
  - METABOLIC ACIDOSIS [None]
  - OVERDOSE [None]
  - PARAESTHESIA [None]
  - PULMONARY CONGESTION [None]
  - RESPIRATORY ALKALOSIS [None]
  - TACHYPNOEA [None]
